FAERS Safety Report 8462008-9 (Version None)
Quarter: 2012Q2

REPORT INFORMATION
  Report Type: 
  Country: None (occurrence: None)
  Receive Date: 20120625
  Receipt Date: 20120615
  Transmission Date: 20120825
  Serious: Yes (Other)
  Sender: FDA-Public Use
  Company Number: CA-JNJFOC-20120607956

PATIENT
  Sex: Male
  Weight: 101 kg

DRUGS (3)
  1. REMICADE [Suspect]
     Route: 042
     Dates: start: 20100101
  2. FLOMAX [Concomitant]
     Route: 065
  3. REMICADE [Suspect]
     Indication: CROHN'S DISEASE
     Route: 042
     Dates: start: 20120401

REACTIONS (1)
  - RENAL COLIC [None]
